FAERS Safety Report 5798773-9 (Version None)
Quarter: 2008Q3

REPORT INFORMATION
  Report Type: 
  Country: None (occurrence: None)
  Receive Date: 20080702
  Receipt Date: 20080617
  Transmission Date: 20090109
  Serious: Yes (Other)
  Sender: FDA-Public Use
  Company Number: DE-GENENTECH-263267

PATIENT
  Sex: Male

DRUGS (3)
  1. AVASTIN [Suspect]
     Indication: COLON CANCER
  2. FLUOROURACIL [Concomitant]
     Indication: COLON CANCER
  3. GEMCITABINE [Concomitant]
     Indication: COLON CANCER

REACTIONS (1)
  - PANCREATITIS [None]
